FAERS Safety Report 7620320-7 (Version None)
Quarter: 2011Q3

REPORT INFORMATION
  Report Type: 
  Country: None (occurrence: None)
  Receive Date: 20110719
  Receipt Date: 20110706
  Transmission Date: 20111222
  Serious: Yes (Disabling)
  Sender: FDA-Public Use
  Company Number: PHHY2011CH61088

PATIENT
  Age: 23 Year
  Sex: Male
  Weight: 75 kg

DRUGS (10)
  1. VENLAFAXINE [Suspect]
     Dosage: 375 MG, UNK
     Route: 048
     Dates: start: 20101130, end: 20101227
  2. VENLAFAXINE [Suspect]
     Dosage: 75 MG, UNK
     Route: 048
     Dates: start: 20101119, end: 20101119
  3. VENLAFAXINE [Suspect]
     Dosage: 225 MG, UNK
     Route: 048
     Dates: start: 20101120, end: 20101121
  4. VENLAFAXINE [Suspect]
     Dosage: 300 MG, UNK
     Route: 048
     Dates: start: 20101122, end: 20101129
  5. VENLAFAXINE [Suspect]
     Dosage: 225 MG, UNK
     Route: 048
     Dates: start: 20101228, end: 20101229
  6. VENLAFAXINE [Suspect]
     Dosage: 75 MG, UNK
     Route: 048
     Dates: start: 20101230, end: 20110103
  7. LORAZEPAM [Suspect]
     Dosage: 5.5 MG, UNK
     Route: 048
     Dates: start: 20101119, end: 20101124
  8. LORAZEPAM [Suspect]
     Dosage: 3.5 MG, UNK
     Route: 048
     Dates: start: 20101125, end: 20101130
  9. LORAZEPAM [Suspect]
     Dosage: 2 MG, UNK
     Route: 048
     Dates: start: 20101201, end: 20101223
  10. LORAZEPAM [Concomitant]
     Dosage: 1 MG, UNK
     Dates: start: 20101228, end: 20101230

REACTIONS (1)
  - ENURESIS [None]
